FAERS Safety Report 25647371 (Version 2)
Quarter: 2025Q4

REPORT INFORMATION
  Report Type: Spontaneous
  Country: US (occurrence: US)
  Receive Date: 20250806
  Receipt Date: 20251209
  Transmission Date: 20260117
  Serious: Yes (Hospitalization)
  Sender: ELI LILLY AND COMPANY
  Company Number: US-ELI_LILLY_AND_COMPANY-US202507026774

PATIENT
  Age: 53 Year
  Sex: Female
  Weight: 121.09 kg

DRUGS (44)
  1. TRULICITY [Suspect]
     Active Substance: DULAGLUTIDE
     Indication: Type 2 diabetes mellitus
     Dosage: 1.5 MG, WEEKLY (1/W)
     Route: 065
     Dates: start: 20191024, end: 20211005
  2. RYBELSUS [Suspect]
     Active Substance: SEMAGLUTIDE
     Indication: Product used for unknown indication
     Dosage: UNK UNK, UNKNOWN
     Route: 065
     Dates: start: 202109, end: 202204
  3. ALBUTEROL [Concomitant]
     Active Substance: ALBUTEROL
     Indication: Asthma
     Dosage: UNK
     Dates: start: 20200317, end: 20220625
  4. ALPRAZOLAM [Concomitant]
     Active Substance: ALPRAZOLAM
     Indication: Anxiety
     Dosage: UNK
     Dates: start: 20181217, end: 20210929
  5. AMITRIPTYLINE [Concomitant]
     Active Substance: AMITRIPTYLINE
     Indication: Depression
     Dosage: UNK
     Dates: start: 20210309, end: 20210406
  6. AMLODIPINE [Concomitant]
     Active Substance: AMLODIPINE BESYLATE
     Indication: Hypertension
     Dosage: UNK
     Dates: start: 20221007, end: 20230831
  7. ARIPIPRAZOLE [Concomitant]
     Active Substance: ARIPIPRAZOLE
     Indication: Depression
     Dosage: UNK
     Dates: start: 20180615, end: 20200228
  8. ARMODAFINIL [Concomitant]
     Active Substance: ARMODAFINIL
     Indication: Somnolence
     Dosage: UNK
     Dates: start: 20190214, end: 20231011
  9. AUROVELA FE 1/20 [Concomitant]
     Active Substance: ETHINYL ESTRADIOL\NORETHINDRONE ACETATE
     Indication: Contraception
     Dosage: UNK
     Dates: start: 20200909, end: 20220502
  10. WELLBUTRIN [Concomitant]
     Active Substance: BUPROPION HYDROCHLORIDE
     Indication: Major depression
     Dosage: UNK
     Dates: start: 20220602, end: 20230730
  11. GABAPENTIN [Concomitant]
     Active Substance: GABAPENTIN
     Indication: Arthralgia
     Dosage: UNK
     Dates: start: 20201007, end: 20230314
  12. GLIMEPIRIDE [Concomitant]
     Active Substance: GLIMEPIRIDE
     Indication: Diabetes mellitus
     Dosage: UNK
     Dates: start: 20200304, end: 20231101
  13. HUMALOG [Concomitant]
     Active Substance: INSULIN LISPRO
     Indication: Diabetes mellitus
     Dosage: UNK
     Dates: start: 20220728, end: 20230820
  14. HYDROCHLOROTHIAZIDE [Concomitant]
     Active Substance: HYDROCHLOROTHIAZIDE
     Indication: Hypertension
     Dosage: UNK
     Dates: start: 20210817, end: 20220507
  15. IBUPROFEN [Concomitant]
     Active Substance: IBUPROFEN
     Indication: Pain
     Dosage: UNK
     Dates: start: 20191118, end: 20220531
  16. JARDIANCE [Concomitant]
     Active Substance: EMPAGLIFLOZIN
     Indication: Diabetes mellitus
     Dosage: UNK
     Dates: start: 20190412, end: 20190509
  17. LAMICTAL [Concomitant]
     Active Substance: LAMOTRIGINE
     Indication: Depression
     Dosage: UNK
     Dates: start: 20180103, end: 20230930
  18. LANTUS SOLOSTAR [Concomitant]
     Active Substance: INSULIN GLARGINE
     Indication: Diabetes mellitus
     Dosage: UNK
     Dates: start: 20220808, end: 20230428
  19. LATUDA [Concomitant]
     Active Substance: LURASIDONE HYDROCHLORIDE
     Indication: Depression
     Dosage: UNK
     Dates: start: 20200228, end: 20220725
  20. LEVOTHYROXINE [Concomitant]
     Active Substance: LEVOTHYROXINE
     Indication: Thyroid hormones decreased
     Dosage: UNK
     Dates: start: 20180819, end: 20231031
  21. LOSARTAN [Concomitant]
     Active Substance: LOSARTAN
     Indication: Blood cholesterol abnormal
     Dosage: UNK
     Dates: start: 20180601, end: 20230722
  22. METFORMIN [Concomitant]
     Active Substance: METFORMIN HYDROCHLORIDE
     Indication: Diabetes mellitus
     Dosage: UNK
     Dates: start: 20190412, end: 20231011
  23. REGLAN [Concomitant]
     Active Substance: METOCLOPRAMIDE HYDROCHLORIDE
     Indication: Impaired gastric emptying
     Dosage: UNK
     Dates: start: 20220301, end: 20220401
  24. MIRTAZAPINE [Concomitant]
     Active Substance: MIRTAZAPINE
     Indication: Depression
     Dosage: UNK
     Dates: start: 20230623, end: 20231013
  25. MONTELUKAST [Concomitant]
     Active Substance: MONTELUKAST
     Indication: Asthma
     Dosage: UNK
     Dates: start: 20220419, end: 20230831
  26. NYSTATIN [Concomitant]
     Active Substance: NYSTATIN
     Indication: Skin disorder
     Dosage: UNK
     Dates: start: 20201118, end: 20230918
  27. ONDANSETRON [Concomitant]
     Active Substance: ONDANSETRON
     Indication: Nausea
  28. OXCARBAZEPINE [Concomitant]
     Active Substance: OXCARBAZEPINE
     Indication: Depression
  29. PANTOPRAZOLE [Concomitant]
     Active Substance: PANTOPRAZOLE
     Indication: Gastrooesophageal reflux disease
  30. PHENTERMINE [Concomitant]
     Active Substance: PHENTERMINE
     Indication: Weight control
  31. TIZANIDINE [Concomitant]
     Active Substance: TIZANIDINE
     Indication: Myalgia
  32. TRAZODONE [Concomitant]
     Active Substance: TRAZODONE HYDROCHLORIDE
     Indication: Sleep disorder
  33. VENLAFAXINE [Concomitant]
     Active Substance: VENLAFAXINE HYDROCHLORIDE
     Indication: Depression
  34. VYVANSE [Concomitant]
     Active Substance: LISDEXAMFETAMINE DIMESYLATE
     Indication: Depression
  35. ALEVE [Concomitant]
     Active Substance: NAPROXEN SODIUM
     Indication: Pain
  36. CENTRUM B [Concomitant]
     Indication: Vitamin supplementation
  37. CLARITIN [Concomitant]
     Active Substance: LORATADINE
     Indication: Hypersensitivity
  38. FLONASE ALLERGY RELIEF [Concomitant]
     Active Substance: FLUTICASONE PROPIONATE
     Indication: Hypersensitivity
  39. LYONS [Concomitant]
     Indication: Nausea
  40. LYONS [Concomitant]
     Indication: Vomiting
  41. MILK OF MAGNESIA [Concomitant]
     Active Substance: MAGNESIUM HYDROXIDE
     Indication: Constipation
  42. PEPTO-BISMOL [Concomitant]
     Active Substance: BISMUTH SUBSALICYLATE
     Indication: Dyspepsia
  43. TYLENOL [Concomitant]
     Active Substance: ACETAMINOPHEN
     Indication: Pain
  44. LEVOCABASTINE HYDROCHLORIDE [Concomitant]
     Active Substance: LEVOCABASTINE HYDROCHLORIDE
     Indication: Hypersensitivity

REACTIONS (3)
  - Impaired gastric emptying [Recovered/Resolved]
  - Nausea [Recovered/Resolved]
  - Vomiting [Recovered/Resolved]

NARRATIVE: CASE EVENT DATE: 20091101
